FAERS Safety Report 7283287-X (Version None)
Quarter: 2011Q1

REPORT INFORMATION
  Report Type: 
  Country: None (occurrence: None)
  Receive Date: 20110209
  Receipt Date: 20110204
  Transmission Date: 20110831
  Serious: Yes (Hospitalization)
  Sender: FDA-Public Use
  Company Number: GB-TEVA-259966ISR

PATIENT
  Sex: Male

DRUGS (11)
  1. PREDNISOLONE [Suspect]
     Indication: PROSTATE CANCER METASTATIC
     Route: 048
     Dates: start: 20100212
  2. GOSERELIN [Concomitant]
     Indication: HORMONE THERAPY
     Route: 058
     Dates: start: 20071101
  3. GOSERELIN [Concomitant]
     Indication: PROSTATE CANCER
     Dates: start: 20100212
  4. ABIRATERONE ACETATE VS PLACEBO [Suspect]
     Dates: start: 20101112, end: 20110110
  5. ABIRATERONE ACETATE VS PLACEBO [Suspect]
     Indication: PROSTATE CANCER METASTATIC
     Route: 048
     Dates: start: 20100212, end: 20101108
  6. SIMVASTATIN [Concomitant]
     Indication: HYPERCHOLESTEROLAEMIA
     Route: 048
     Dates: start: 20090401
  7. METFORMIN HCL [Concomitant]
     Indication: DIABETES MELLITUS
     Route: 048
     Dates: start: 20041201
  8. REPAGLINIDE [Concomitant]
     Indication: HYPERGLYCAEMIA
     Route: 048
     Dates: start: 20100726
  9. RAMIPRIL [Concomitant]
     Indication: HYPERTENSION
     Route: 048
     Dates: start: 20100125
  10. METFORMIN HCL [Concomitant]
     Dates: start: 20100426
  11. PARACETAMOL [Concomitant]
     Indication: ARTHRALGIA
     Route: 048
     Dates: start: 20100127

REACTIONS (1)
  - TRANSIENT ISCHAEMIC ATTACK [None]
